FAERS Safety Report 25608066 (Version 1)
Quarter: 2025Q3

REPORT INFORMATION
  Report Type: Spontaneous
  Country: US (occurrence: US)
  Receive Date: 20250725
  Receipt Date: 20250725
  Transmission Date: 20251021
  Serious: No
  Sender: BRISTOL-MYERS SQUIBB COMPANY
  Company Number: US-BRISTOL-MYERS SQUIBB COMPANY-2025-104424

PATIENT
  Age: 71 Year
  Sex: Female

DRUGS (1)
  1. LENALIDOMIDE [Suspect]
     Active Substance: LENALIDOMIDE
     Indication: Pollakiuria
     Dosage: TAKE 1 CAPSULE BY MOUTH EVERY 24 HOURS ON DAYS 1-21 EVERY 28 DAYS
     Route: 048

REACTIONS (3)
  - Renal disorder [Recovering/Resolving]
  - Platelet count abnormal [Recovering/Resolving]
  - Off label use [Unknown]
